FAERS Safety Report 9810851 (Version 4)
Quarter: 2015Q2

REPORT INFORMATION
  Report Type: Spontaneous
  Country: US (occurrence: US)
  Receive Date: 20140110
  Receipt Date: 20150526
  Transmission Date: 20150821
  Serious: Yes (Death, Other)
  Sender: FDA-Public Use
  Company Number: US-SANOFI-AVENTIS-2013SA003723

PATIENT
  Age: 64 Year
  Sex: Male

DRUGS (2)
  1. ASPIRIN. [Concomitant]
     Active Substance: ASPIRIN
  2. PLAVIX [Suspect]
     Active Substance: CLOPIDOGREL BISULFATE
     Indication: STENT PLACEMENT
     Route: 048
     Dates: start: 20081001, end: 20110101

REACTIONS (3)
  - Cerebrovascular accident [Fatal]
  - Multiple injuries [Unknown]
  - Cerebral haemorrhage [Fatal]

NARRATIVE: CASE EVENT DATE: 201101
